FAERS Safety Report 7401755-4 (Version None)
Quarter: 2011Q2

REPORT INFORMATION
  Report Type: 
  Country: None (occurrence: None)
  Receive Date: 20110408
  Receipt Date: 20110405
  Transmission Date: 20111010
  Serious: No
  Sender: FDA-Public Use
  Company Number: US-PFIZER INC-2011075949

PATIENT

DRUGS (1)
  1. LYRICA [Suspect]
     Dosage: 75 MG, 2X/DAY

REACTIONS (1)
  - MUSCULAR WEAKNESS [None]
